FAERS Safety Report 7425407-X (Version None)
Quarter: 2011Q2

REPORT INFORMATION
  Report Type: 
  Country: None (occurrence: None)
  Receive Date: 20110414
  Receipt Date: 20110405
  Transmission Date: 20111010
  Serious: Yes (Hospitalization)
  Sender: FDA-Public Use
  Company Number: US-JNJFOC-20110402603

PATIENT
  Age: 66 Year
  Sex: Male
  Weight: 77.7 kg

DRUGS (2)
  1. DACOGEN [Suspect]
     Indication: ACUTE MYELOID LEUKAEMIA
     Dosage: 20 MG/M2, 5 IN 1 CYCLICAL, INTRAVENOUS
     Route: 042
     Dates: start: 20110307, end: 20110311
  2. BEXAROTENE (BEXAROTENE) UNSPECIFIED [Suspect]
     Indication: ACUTE MYELOID LEUKAEMIA
     Dosage: 200 MG/M2, ORAL
     Route: 048
     Dates: start: 20110208, end: 20110325

REACTIONS (6)
  - FATIGUE [None]
  - EYE SWELLING [None]
  - FEBRILE NEUTROPENIA [None]
  - ASTHENIA [None]
  - STAPHYLOCOCCAL INFECTION [None]
  - PAIN [None]
